FAERS Safety Report 19456601 (Version 1)
Quarter: 2021Q2

REPORT INFORMATION
  Report Type: Spontaneous
  Country: US (occurrence: US)
  Receive Date: 20210624
  Receipt Date: 20210624
  Transmission Date: 20210717
  Serious: Yes (Other)
  Sender: FDA-Public Use
  Company Number: None

PATIENT
  Age: 71 Year
  Sex: Female
  Weight: 59.9 kg

DRUGS (1)
  1. RUXIENCE [Suspect]
     Active Substance: RITUXIMAB-PVVR
     Indication: GLOMERULONEPHRITIS
     Route: 041

REACTIONS (2)
  - Wheezing [None]
  - Hypertension [None]

NARRATIVE: CASE EVENT DATE: 20210618
